FAERS Safety Report 9314232 (Version 1)
Quarter: 2013Q2

REPORT INFORMATION
  Report Type: Spontaneous
  Country: US (occurrence: US)
  Receive Date: 20130529
  Receipt Date: 20130529
  Transmission Date: 20140414
  Serious: No
  Sender: FDA-Public Use
  Company Number: US-TEVA-US020015

PATIENT
  Age: 69 Year
  Sex: Male

DRUGS (1)
  1. FENTORA [Suspect]
     Route: 065

REACTIONS (1)
  - Incorrect route of drug administration [Unknown]
